FAERS Safety Report 10589140 (Version 2)
Quarter: 2014Q4

REPORT INFORMATION
  Report Type: Spontaneous
  Country: CH (occurrence: CH)
  Receive Date: 20141118
  Receipt Date: 20141201
  Transmission Date: 20150529
  Serious: Yes (Other)
  Sender: FDA-Public Use
  Company Number: PHHY2014CH148415

PATIENT
  Age: 64 Year
  Sex: Female

DRUGS (5)
  1. VITAMIN D3 [Concomitant]
     Active Substance: CHOLECALCIFEROL
     Indication: OSTEOPOROSIS PROPHYLAXIS
     Route: 065
  2. PREDNISONE. [Suspect]
     Active Substance: PREDNISONE
     Indication: TEMPORAL ARTERITIS
     Dosage: 60 MG, QD
     Route: 065
  3. PANTOPRAZOLE [Concomitant]
     Active Substance: PANTOPRAZOLE SODIUM
     Indication: DYSPEPSIA
     Route: 065
  4. CALCIUM [Concomitant]
     Active Substance: CALCIUM
     Indication: OSTEOPOROSIS PROPHYLAXIS
     Route: 065
  5. PREDNISONE. [Suspect]
     Active Substance: PREDNISONE
     Dosage: 20 MG, QD
     Route: 065

REACTIONS (17)
  - Osteoporosis [Unknown]
  - Leukocytosis [Unknown]
  - Femoral neck fracture [Unknown]
  - Cushingoid [Unknown]
  - Diabetes mellitus [Unknown]
  - Abdominal distension [Unknown]
  - Sleep disorder [Unknown]
  - Hypertension [Unknown]
  - Central obesity [Unknown]
  - Fall [Unknown]
  - Weight increased [Unknown]
  - Swelling face [Unknown]
  - Gastritis [Unknown]
  - Skin striae [Unknown]
  - Oedema peripheral [Unknown]
  - Neutrophilia [Unknown]
  - Skin atrophy [Unknown]
